FAERS Safety Report 11203280 (Version 1)
Quarter: 2015Q2

REPORT INFORMATION
  Report Type: Spontaneous
  Country: US (occurrence: US)
  Receive Date: 20150619
  Receipt Date: 20150619
  Transmission Date: 20150821
  Serious: Yes (Death, Other)
  Sender: FDA-Public Use
  Company Number: US-PFIZER INC-2015203674

PATIENT
  Age: 58 Year
  Sex: Female
  Weight: 90 kg

DRUGS (5)
  1. CEFTRIAXONE. [Suspect]
     Active Substance: CEFTRIAXONE
     Indication: SINUSITIS
     Dosage: 1 G SINGLE
     Route: 030
     Dates: start: 20150602, end: 20150602
  2. CYANOCOBALAMIN. [Concomitant]
     Active Substance: CYANOCOBALAMIN
     Indication: FATIGUE
     Dosage: 1000 ?G, ONCE
  3. DEPO-MEDROL [Suspect]
     Active Substance: METHYLPREDNISOLONE ACETATE
     Indication: SINUSITIS
     Dosage: 100 MG, ONCE
     Route: 030
     Dates: start: 20150602, end: 20150602
  4. CEFTRIAXONE. [Suspect]
     Active Substance: CEFTRIAXONE
     Dosage: 1 G SINGLE
     Route: 030
     Dates: start: 20150602, end: 20150602
  5. LIDOCAINE. [Suspect]
     Active Substance: LIDOCAINE
     Dosage: UNK
     Route: 030
     Dates: start: 20150602, end: 20150602

REACTIONS (8)
  - Cardiac arrest [Fatal]
  - Unresponsive to stimuli [Unknown]
  - Anaphylactic shock [Fatal]
  - Injection site pruritus [Unknown]
  - Pharyngeal oedema [Unknown]
  - Vision blurred [Unknown]
  - Rash [Unknown]
  - Pruritus [Unknown]

NARRATIVE: CASE EVENT DATE: 20150602
